FAERS Safety Report 8131996-2 (Version None)
Quarter: 2012Q1

REPORT INFORMATION
  Report Type: 
  Country: None (occurrence: None)
  Receive Date: 20120213
  Receipt Date: 20120201
  Transmission Date: 20120608
  Serious: Yes (Death, Hospitalization, Other)
  Sender: FDA-Public Use
  Company Number: US-MYLANLABS-2012S1003015

PATIENT
  Sex: Male
  Weight: 111.59 kg

DRUGS (16)
  1. DIGOXIN [Suspect]
     Indication: HEART RATE ABNORMAL
     Route: 048
     Dates: start: 20080314, end: 20080508
  2. ENALAPRIL MALEATE [Concomitant]
  3. CEFDINIR [Concomitant]
     Dosage: FOR FIVE MORE DAYS
     Route: 048
  4. ASPIRIN [Concomitant]
  5. DEXTROMETHORPHAN [Concomitant]
  6. CALCIUM ACETATE [Concomitant]
     Route: 048
  7. AMLODIPINE [Concomitant]
  8. FUROSEMIDE [Concomitant]
     Route: 048
  9. CODEINE PHOSPHATE W/GUAIFENESIN [Concomitant]
     Dosage: 10MG/5MG
  10. GLYBURIDE [Concomitant]
     Route: 048
  11. LOSARTAN POTASSIUM [Concomitant]
  12. METOPROLOL TARTRATE [Concomitant]
     Route: 048
  13. PANTOPRAZOLE [Concomitant]
  14. LEVOFLOXACIN [Concomitant]
     Dosage: ONE TABLET ORALLY EVERY DAY FOR 4 DAYS
     Route: 048
  15. COMBIVENT [Concomitant]
     Dosage: 18-103 MCG/ACTUATION 1 PUFF EVERY 6 HOURS AS NEEDED
     Route: 055
  16. GUAIFENESIN [Concomitant]
     Dosage: 10-100MG/5ML

REACTIONS (49)
  - ATRIOVENTRICULAR BLOCK FIRST DEGREE [None]
  - BREATH SOUNDS ABNORMAL [None]
  - CONDUCTION DISORDER [None]
  - COUGH [None]
  - HEART SOUNDS ABNORMAL [None]
  - HYPOTENSION [None]
  - RALES [None]
  - SUPRAVENTRICULAR EXTRASYSTOLES [None]
  - HYPOXIA [None]
  - CARDIOACTIVE DRUG LEVEL INCREASED [None]
  - CONDITION AGGRAVATED [None]
  - LEFT VENTRICULAR DYSFUNCTION [None]
  - OSTEOPENIA [None]
  - ANAEMIA [None]
  - ATRIAL FLUTTER [None]
  - BRONCHITIS [None]
  - CARDIOMEGALY [None]
  - SPINAL OSTEOARTHRITIS [None]
  - INJURY [None]
  - ECONOMIC PROBLEM [None]
  - DYSPNOEA [None]
  - HYPERTENSION [None]
  - BUNDLE BRANCH BLOCK [None]
  - DIZZINESS [None]
  - UPPER RESPIRATORY TRACT INFECTION [None]
  - VENTRICULAR HYPOKINESIA [None]
  - TOXICITY TO VARIOUS AGENTS [None]
  - ATRIAL FIBRILLATION [None]
  - PULMONARY HYPERTENSION [None]
  - ASTHENIA [None]
  - BENIGN PROSTATIC HYPERPLASIA [None]
  - BLOOD GLUCOSE DECREASED [None]
  - CHEST PAIN [None]
  - LEFT VENTRICULAR HYPERTROPHY [None]
  - OXYGEN CONSUMPTION INCREASED [None]
  - DEATH [None]
  - BRADYCARDIA [None]
  - FATIGUE [None]
  - ATELECTASIS [None]
  - AORTIC DISORDER [None]
  - BONE DISORDER [None]
  - RHONCHI [None]
  - VENTRICULAR EXTRASYSTOLES [None]
  - ILL-DEFINED DISORDER [None]
  - VENTRICULAR TACHYCARDIA [None]
  - CONSTIPATION [None]
  - DYSPNOEA EXERTIONAL [None]
  - ELECTROCARDIOGRAM POOR R-WAVE PROGRESSION [None]
  - WHEEZING [None]
